FAERS Safety Report 10894798 (Version 1)
Quarter: 2015Q1

REPORT INFORMATION
  Report Type: Spontaneous
  Country: US (occurrence: US)
  Receive Date: 20150306
  Receipt Date: 20150306
  Transmission Date: 20150721
  Serious: No
  Sender: FDA-Public Use
  Company Number: US-GLAXOSMITHKLINE-US2015017086

PATIENT
  Sex: Female

DRUGS (15)
  1. LUMIGAN [Concomitant]
     Active Substance: BIMATOPROST
  2. NOVOLOG [Concomitant]
     Active Substance: INSULIN ASPART
  3. SYNTHROID [Concomitant]
     Active Substance: LEVOTHYROXINE SODIUM
  4. HYDROCHLOROTHIAZIDE. [Concomitant]
     Active Substance: HYDROCHLOROTHIAZIDE
  5. CEFTIN [Suspect]
     Active Substance: CEFUROXIME AXETIL
     Indication: SINUSITIS
  6. ASPIRIN. [Concomitant]
     Active Substance: ASPIRIN
  7. DELSYM [Concomitant]
     Active Substance: DEXTROMETHORPHAN
  8. LIPITOR [Concomitant]
     Active Substance: ATORVASTATIN CALCIUM
  9. ZETIA [Concomitant]
     Active Substance: EZETIMIBE
  10. CEFTIN [Suspect]
     Active Substance: CEFUROXIME AXETIL
     Indication: BRONCHITIS
     Dosage: 5 ML, QD
     Route: 048
  11. LOVAZA [Concomitant]
     Active Substance: OMEGA-3-ACID ETHYL ESTERS
  12. MUCINEX [Concomitant]
     Active Substance: GUAIFENESIN
  13. AZOPT [Concomitant]
     Active Substance: BRINZOLAMIDE
  14. COMBIGAN [Concomitant]
     Active Substance: BRIMONIDINE TARTRATE\TIMOLOL MALEATE
  15. COZAAR [Concomitant]
     Active Substance: LOSARTAN POTASSIUM

REACTIONS (1)
  - Blood glucose increased [Not Recovered/Not Resolved]
